FAERS Safety Report 9125859 (Version 1)
Quarter: 2013Q1

REPORT INFORMATION
  Report Type: Spontaneous
  Country: US (occurrence: US)
  Receive Date: 20130228
  Receipt Date: 20130228
  Transmission Date: 20140127
  Serious: No
  Sender: FDA-Public Use
  Company Number: US-009507513-1302USA011022

PATIENT
  Sex: Female
  Weight: 58.5 kg

DRUGS (3)
  1. NUVARING [Suspect]
     Indication: CONTRACEPTION
     Dosage: 1 RING/EVERY 28 DAYS
     Route: 067
     Dates: start: 201108
  2. PLAN B [Concomitant]
  3. CLOTRIMAZOLE [Concomitant]

REACTIONS (2)
  - Fungal infection [Unknown]
  - Device breakage [Unknown]
